FAERS Safety Report 7126396-8 (Version None)
Quarter: 2010Q4

REPORT INFORMATION
  Report Type: 
  Country: None (occurrence: None)
  Receive Date: 20101129
  Receipt Date: 20101119
  Transmission Date: 20110411
  Serious: Yes (Other)
  Sender: FDA-Public Use
  Company Number: DE-ASTRAZENECA-2010SE52427

PATIENT
  Age: 20754 Day
  Sex: Female
  Weight: 92 kg

DRUGS (1)
  1. ARIMIDEX [Suspect]
     Indication: BREAST CANCER
     Route: 048
     Dates: start: 20080827, end: 20100315

REACTIONS (3)
  - ARTHRALGIA [None]
  - DEPRESSED MOOD [None]
  - HOT FLUSH [None]
